FAERS Safety Report 5414471-5 (Version None)
Quarter: 2007Q3

REPORT INFORMATION
  Report Type: 
  Country: None (occurrence: None)
  Receive Date: 20070713
  Receipt Date: 20070423
  Transmission Date: 20080115
  Serious: Yes (Other)
  Sender: FDA-Public Use
  Company Number: US-JNJFOC-20061002111

PATIENT
  Age: 30 Year
  Sex: Female
  Weight: 65.7716 kg

DRUGS (6)
  1. ORTHO EVRA [Suspect]
     Indication: DRUG USE FOR UNKNOWN INDICATION
     Dates: start: 20060303, end: 20060427
  2. ORTHO EVRA [Suspect]
     Indication: DRUG USE FOR UNKNOWN INDICATION
     Dates: start: 20021101
  3. AMOXICILLIN [Concomitant]
  4. VITAMIN B12 [Concomitant]
  5. SUDAFED 12 HOUR [Concomitant]
  6. FLONASE [Concomitant]

REACTIONS (1)
  - CEREBRAL INFARCTION [None]
